FAERS Safety Report 7564054-6 (Version None)
Quarter: 2011Q2

REPORT INFORMATION
  Report Type: 
  Country: None (occurrence: None)
  Receive Date: 20110622
  Receipt Date: 20110615
  Transmission Date: 20111010
  Serious: Yes (Other)
  Sender: FDA-Public Use
  Company Number: US-PURDUE-USA-2011-0070510

PATIENT
  Sex: Male

DRUGS (2)
  1. LYRICA [Suspect]
     Indication: BONE PAIN
     Dosage: 300 MG, Q12H
  2. OXYCONTIN [Suspect]
     Indication: BONE PAIN

REACTIONS (5)
  - NERVE INJURY [None]
  - OEDEMA PERIPHERAL [None]
  - BONE DISORDER [None]
  - FIBROMYALGIA [None]
  - HEPATITIS C [None]
